FAERS Safety Report 7325572-9 (Version None)
Quarter: 2011Q1

REPORT INFORMATION
  Report Type: 
  Country: None (occurrence: None)
  Receive Date: 20110302
  Receipt Date: 20110224
  Transmission Date: 20110831
  Serious: Yes (Hospitalization)
  Sender: FDA-Public Use
  Company Number: GR-CUBIST-2011S1000122

PATIENT
  Age: 25 Year
  Sex: Male

DRUGS (1)
  1. CUBICIN [Suspect]
     Indication: SOFT TISSUE INFECTION
     Route: 065

REACTIONS (1)
  - PNEUMONITIS [None]
